FAERS Safety Report 7606312-2 (Version None)
Quarter: 2011Q3

REPORT INFORMATION
  Report Type: 
  Country: None (occurrence: None)
  Receive Date: 20110713
  Receipt Date: 20110629
  Transmission Date: 20111222
  Serious: Yes (Hospitalization, Other)
  Sender: FDA-Public Use
  Company Number: US-BAYER-201031343NA

PATIENT
  Age: 25 Year
  Sex: Female
  Weight: 61.224 kg

DRUGS (2)
  1. YAZ [Suspect]
     Indication: ACNE
     Dosage: UNK
     Route: 048
     Dates: start: 20080501, end: 20090301
  2. IBUPROFEN [Concomitant]
     Indication: PAIN
     Dosage: UNK
     Dates: start: 20090301

REACTIONS (5)
  - DEEP VEIN THROMBOSIS [None]
  - DEPRESSION [None]
  - ANXIETY [None]
  - DISCOMFORT [None]
  - PAIN [None]
